FAERS Safety Report 8292381-6 (Version None)
Quarter: 2012Q2

REPORT INFORMATION
  Report Type: 
  Country: None (occurrence: None)
  Receive Date: 20120417
  Receipt Date: 20120412
  Transmission Date: 20120825
  Serious: Yes (Other)
  Sender: FDA-Public Use
  Company Number: CHPA2012US008190

PATIENT
  Age: 64 Year
  Sex: Female

DRUGS (6)
  1. BEN-GAY [Concomitant]
  2. VOLTAREN [Suspect]
     Dosage: LESS THAN A 1/4 OF THE DOSING CARD TO SHOULDERS AND A QUARTER OF THE DOSING CARD TO THE BACK, UNK
     Route: 061
     Dates: start: 20120412
  3. LIDODERM [Concomitant]
  4. DRUG THERAPY NOS [Concomitant]
  5. DRUG THERAPY NOS [Concomitant]
  6. VOLTAREN [Suspect]
     Indication: ARTHRITIS
     Dosage: 1/4 OF THE DOSING CARD, UNK
     Route: 061
     Dates: start: 20070101

REACTIONS (7)
  - INTERVERTEBRAL DISC DEGENERATION [None]
  - INTERVERTEBRAL DISC PROTRUSION [None]
  - OFF LABEL USE [None]
  - DRUG ADMINISTERED AT INAPPROPRIATE SITE [None]
  - ATRIAL FIBRILLATION [None]
  - CARDIOVASCULAR DISORDER [None]
  - UNDERDOSE [None]
